FAERS Safety Report 7125417-6 (Version None)
Quarter: 2010Q4

REPORT INFORMATION
  Report Type: 
  Country: None (occurrence: None)
  Receive Date: 20101129
  Receipt Date: 20101116
  Transmission Date: 20110411
  Serious: Yes (Other)
  Sender: FDA-Public Use
  Company Number: US-ELI_LILLY_AND_COMPANY-US201011005655

PATIENT
  Sex: Female

DRUGS (2)
  1. EFFIENT [Suspect]
     Indication: STENT PLACEMENT
     Dosage: 60 MG, UNK
  2. ANGIOMAX [Concomitant]

REACTIONS (3)
  - LABORATORY TEST ABNORMAL [None]
  - NEUTROPENIA [None]
  - THROMBOTIC THROMBOCYTOPENIC PURPURA [None]
